FAERS Safety Report 17862136 (Version 1)
Quarter: 2020Q2

REPORT INFORMATION
  Report Type: Report from Study
  Country: IN (occurrence: IN)
  Receive Date: 20200604
  Receipt Date: 20200604
  Transmission Date: 20200714
  Serious: Yes (Hospitalization)
  Sender: FDA-Public Use
  Company Number: NVSC2020IN154943

PATIENT
  Age: 12 Year
  Sex: Male

DRUGS (1)
  1. REVOLADE [Suspect]
     Active Substance: ELTROMBOPAG
     Indication: APLASTIC ANAEMIA
     Dosage: 150 MG, QD
     Route: 065
     Dates: start: 20200318, end: 20200423

REACTIONS (3)
  - White blood cell count decreased [Unknown]
  - Pain in extremity [Unknown]
  - Vomiting [Unknown]

NARRATIVE: CASE EVENT DATE: 20200423
